FAERS Safety Report 7681359-9 (Version None)
Quarter: 2011Q3

REPORT INFORMATION
  Report Type: 
  Country: None (occurrence: None)
  Receive Date: 20110812
  Receipt Date: 20110808
  Transmission Date: 20111222
  Serious: Yes (Life-Threatening, Hospitalization)
  Sender: FDA-Public Use
  Company Number: US-ROXANE LABORATORIES, INC.-2011-RO-01129RO

PATIENT
  Age: 46 Year
  Sex: Female

DRUGS (7)
  1. LORAZEPAM [Suspect]
  2. METHYLPHENIDATE [Suspect]
     Indication: CATATONIA
  3. BENZODIAZEPINES [Suspect]
     Indication: CATATONIA
  4. LINEZOLID [Suspect]
     Indication: STAPHYLOCOCCAL INFECTION
     Route: 042
  5. ESCITALOPRAM [Suspect]
     Indication: DEPRESSION
  6. PIPERACILLIN AND TAZOBACTAM [Suspect]
     Indication: STAPHYLOCOCCAL INFECTION
     Route: 042
  7. VANCOMYCIN [Suspect]
     Indication: STAPHYLOCOCCAL INFECTION
     Route: 042

REACTIONS (3)
  - STAPHYLOCOCCAL INFECTION [None]
  - RESPIRATORY DISTRESS [None]
  - UROSEPSIS [None]
